FAERS Safety Report 9902752 (Version 1)
Quarter: 2014Q1

REPORT INFORMATION
  Report Type: Spontaneous
  Country: US (occurrence: US)
  Receive Date: 20140217
  Receipt Date: 20140217
  Transmission Date: 20141002
  Serious: Yes (Other)
  Sender: FDA-Public Use
  Company Number: US-RB-062952-14

PATIENT
  Age: 47 Year
  Sex: Male

DRUGS (1)
  1. MUCINEX FAST MAX SEVERE COLD, FLU, THROAT LIQUID [Suspect]
     Indication: INFLUENZA LIKE ILLNESS
     Dosage: TOOK 20ML EVERY 4-6 HOURS
     Route: 048
     Dates: start: 20140201

REACTIONS (3)
  - Hypertension [Unknown]
  - Dizziness [Unknown]
  - Vomiting [Unknown]
